FAERS Safety Report 17536099 (Version 1)
Quarter: 2020Q1

REPORT INFORMATION
  Report Type: Other
  Country: GB (occurrence: GB)
  Receive Date: 20200313
  Receipt Date: 20200313
  Transmission Date: 20200409
  Serious: Yes (Hospitalization, Other)
  Sender: FDA-Public Use
  Company Number: GB-EMCURE PHARMACEUTICALS LTD-2020-EPL-000289

PATIENT
  Age: 46 Year
  Sex: Female
  Weight: 77.1 kg

DRUGS (2)
  1. LEVOFLOXACIN. [Concomitant]
     Active Substance: LEVOFLOXACIN
  2. SULFAMETHOXAZOLE, TRIMETHOPRIM [Suspect]
     Active Substance: SULFAMETHOXAZOLE\TRIMETHOPRIM
     Indication: ARTHRITIS INFECTIVE
     Dosage: 2.88 GRAM, DAILY
     Route: 048
     Dates: start: 20191212, end: 20191227

REACTIONS (4)
  - Fatigue [Unknown]
  - Malaise [Unknown]
  - Pyrexia [Unknown]
  - Pancytopenia [Recovered/Resolved]

NARRATIVE: CASE EVENT DATE: 20191227
